FAERS Safety Report 7772642-7 (Version None)
Quarter: 2011Q3

REPORT INFORMATION
  Report Type: 
  Country: None (occurrence: None)
  Receive Date: 20110922
  Receipt Date: 20110329
  Transmission Date: 20111222
  Serious: No
  Sender: FDA-Public Use
  Company Number: US-ASTRAZENECA-2011SE17967

PATIENT
  Age: 562 Month
  Sex: Male
  Weight: 119.7 kg

DRUGS (4)
  1. LITHIUM [Concomitant]
     Indication: BIPOLAR DISORDER
     Dosage: VIA INSULIN PUMP
  2. SEROQUEL [Suspect]
     Indication: BIPOLAR DISORDER
     Route: 048
     Dates: end: 20040101
  3. SEROQUEL [Suspect]
     Route: 048
     Dates: start: 20090101
  4. HUMALOG [Concomitant]
     Indication: DIABETES MELLITUS
     Dosage: VIA INSULIN PUMP

REACTIONS (6)
  - PALPITATIONS [None]
  - DRUG DOSE OMISSION [None]
  - INSOMNIA [None]
  - MOOD SWINGS [None]
  - DYSPNOEA [None]
  - FATIGUE [None]
